FAERS Safety Report 7630498-7 (Version None)
Quarter: 2011Q3

REPORT INFORMATION
  Report Type: 
  Country: None (occurrence: None)
  Receive Date: 20110722
  Receipt Date: 20110721
  Transmission Date: 20111222
  Serious: Yes (Other)
  Sender: FDA-Public Use
  Company Number: US-PFIZER INC-2011166586

PATIENT
  Sex: Male

DRUGS (1)
  1. CHANTIX [Suspect]
     Dosage: UNK

REACTIONS (4)
  - ABNORMAL DREAMS [None]
  - IMPAIRED DRIVING ABILITY [None]
  - NOCTURIA [None]
  - CONFUSIONAL STATE [None]
